FAERS Safety Report 5216139-7 (Version None)
Quarter: 2007Q1

REPORT INFORMATION
  Report Type: 
  Country: None (occurrence: None)
  Receive Date: 20070123
  Receipt Date: 20070105
  Transmission Date: 20070707
  Serious: Yes (Hospitalization, Other)
  Sender: FDA-Public Use
  Company Number: CH-BRISTOL-MYERS SQUIBB COMPANY-13640081

PATIENT
  Age: 35 Year
  Sex: Female

DRUGS (3)
  1. GLUCOPHAGE [Suspect]
     Indication: POLYCYSTIC OVARIES
     Route: 048
     Dates: end: 20060130
  2. EUTHYROX [Concomitant]
  3. ANDREAFOL [Concomitant]
     Route: 048
     Dates: start: 20060302

REACTIONS (3)
  - ABORTION SPONTANEOUS INCOMPLETE [None]
  - DRUG EXPOSURE DURING PREGNANCY [None]
  - PREGNANCY [None]
